FAERS Safety Report 21160416 (Version 1)
Quarter: 2022Q3

REPORT INFORMATION
  Report Type: Report from Study
  Country: BE (occurrence: BE)
  Receive Date: 20220802
  Receipt Date: 20220802
  Transmission Date: 20221027
  Serious: Yes (Hospitalization, Other)
  Sender: FDA-Public Use
  Company Number: None

PATIENT
  Age: 76 Year
  Sex: Male
  Weight: 91.8 kg

DRUGS (48)
  1. CARBOPLATIN [Suspect]
     Active Substance: CARBOPLATIN
     Indication: Small cell lung cancer extensive stage
     Dates: start: 20210722
  2. ETOPOSIDE [Suspect]
     Active Substance: ETOPOSIDE
     Indication: Small cell lung cancer extensive stage
     Dates: start: 20210630
  3. ATEZOLIZUMAB [Suspect]
     Active Substance: ATEZOLIZUMAB
     Indication: Small cell lung cancer extensive stage
     Dosage: VISIT 1
     Dates: start: 20210722
  4. POTASSIUM CHLORIDE [Concomitant]
     Active Substance: POTASSIUM CHLORIDE
  5. POTASSIUM CHLORIDE [Concomitant]
     Active Substance: POTASSIUM CHLORIDE
     Indication: Adverse event
     Dates: start: 20210707, end: 20210707
  6. PIPERACILLIN SODIUM\TAZOBACTAM SODIUM [Concomitant]
     Active Substance: PIPERACILLIN SODIUM\TAZOBACTAM SODIUM
     Dates: start: 20210713, end: 20210720
  7. SPIRONOLACTONE [Concomitant]
     Active Substance: SPIRONOLACTONE
     Dates: start: 20210701
  8. ACETYLCYSTEINE [Concomitant]
     Active Substance: ACETYLCYSTEINE
     Dates: start: 20210623
  9. BUMETANIDE [Concomitant]
     Active Substance: BUMETANIDE
     Dates: start: 20210707, end: 20210715
  10. ACTRAPID [Concomitant]
     Active Substance: INSULIN HUMAN
     Dates: start: 20210618
  11. DEXAMETHASONE [Concomitant]
     Active Substance: DEXAMETHASONE
     Dates: start: 20210630, end: 20210630
  12. PALONOSETRON [Concomitant]
     Active Substance: PALONOSETRON
     Dates: start: 20210630, end: 20210630
  13. XANAX [Concomitant]
     Active Substance: ALPRAZOLAM
     Indication: Sedation
     Dates: start: 202108
  14. CALCIUM CARBONATE\CHOLECALCIFEROL [Concomitant]
     Active Substance: CALCIUM CARBONATE\CHOLECALCIFEROL
     Indication: Prophylaxis
     Dates: start: 20210618
  15. ENOXAPARIN SODIUM [Concomitant]
     Active Substance: ENOXAPARIN SODIUM
     Indication: Cardiovascular event prophylaxis
     Dates: start: 20210719, end: 20210721
  16. NETUPITANT [Concomitant]
     Active Substance: NETUPITANT
     Dates: start: 20210811, end: 20210811
  17. LIPEGFILGRASTIM [Concomitant]
     Active Substance: LIPEGFILGRASTIM
     Dates: start: 20210716, end: 20210716
  18. OXYGEN [Concomitant]
     Active Substance: OXYGEN
     Dates: start: 202106
  19. MORPHINE [Concomitant]
     Active Substance: MORPHINE
     Indication: Adverse event
     Dates: start: 20210705, end: 20210705
  20. JARDIANCE [Concomitant]
     Active Substance: EMPAGLIFLOZIN
     Dates: start: 20180627
  21. METFORMIN [Concomitant]
     Active Substance: METFORMIN HYDROCHLORIDE
     Dates: start: 20210810
  22. PRAZEPAM [Concomitant]
     Active Substance: PRAZEPAM
     Dates: start: 20210811
  23. ATROVENT [Concomitant]
     Active Substance: IPRATROPIUM BROMIDE
     Dates: start: 20210623
  24. FOLIC ACID [Concomitant]
     Active Substance: FOLIC ACID
     Indication: Prophylaxis
     Dates: start: 20210629
  25. FENTANYL [Concomitant]
     Active Substance: FENTANYL
     Indication: Sedation
     Dates: start: 20210808
  26. ETOPOSIDE [Concomitant]
     Active Substance: ETOPOSIDE
  27. CARBOPLATIN [Concomitant]
     Active Substance: CARBOPLATIN
     Indication: Neoplasm malignant
  28. ENOXAPARIN SODIUM [Concomitant]
     Active Substance: ENOXAPARIN SODIUM
     Indication: Cardiovascular event prophylaxis
     Dates: start: 20210704, end: 20210705
  29. ENOXAPARIN SODIUM [Concomitant]
     Active Substance: ENOXAPARIN SODIUM
     Indication: Cardiovascular event prophylaxis
     Dates: start: 20210707, end: 20210712
  30. ENOXAPARIN SODIUM [Concomitant]
     Active Substance: ENOXAPARIN SODIUM
     Indication: Cardiovascular event prophylaxis
     Dates: start: 20210624, end: 20210703
  31. POTASSIUM CHLORIDE [Concomitant]
     Active Substance: POTASSIUM CHLORIDE
     Indication: Adverse event
     Dates: start: 20210717, end: 20210717
  32. POTASSIUM CHLORIDE [Concomitant]
     Active Substance: POTASSIUM CHLORIDE
     Dates: start: 20210718
  33. PALONOSETRON [Concomitant]
     Active Substance: PALONOSETRON
     Dates: start: 20210722, end: 20210722
  34. PALONOSETRON [Concomitant]
     Active Substance: PALONOSETRON
     Dates: start: 20210811, end: 20210811
  35. LIPEGFILGRASTIM [Concomitant]
     Active Substance: LIPEGFILGRASTIM
     Dates: start: 20210814, end: 20210814
  36. PIPERACILLIN SODIUM\TAZOBACTAM SODIUM [Concomitant]
     Active Substance: PIPERACILLIN SODIUM\TAZOBACTAM SODIUM
     Dates: start: 20210712, end: 20210712
  37. BUMETANIDE [Concomitant]
     Active Substance: BUMETANIDE
     Dates: start: 20210723, end: 20210726
  38. BUMETANIDE [Concomitant]
     Active Substance: BUMETANIDE
     Dates: start: 20210701, end: 20210706
  39. DEXAMETHASONE [Concomitant]
     Active Substance: DEXAMETHASONE
     Dates: start: 20210722, end: 20210722
  40. DEXAMETHASONE [Concomitant]
     Active Substance: DEXAMETHASONE
     Dates: start: 20210630, end: 20210730
  41. DEXAMETHASONE [Concomitant]
     Active Substance: DEXAMETHASONE
     Dates: start: 20210811, end: 20210811
  42. ETOPOSIDE [Suspect]
     Active Substance: ETOPOSIDE
     Indication: Small cell lung cancer extensive stage
     Dates: start: 20210722
  43. CARBOPLATIN [Suspect]
     Active Substance: CARBOPLATIN
     Indication: Small cell lung cancer extensive stage
     Dates: start: 20210630
  44. ATEZOLIZUMAB [Suspect]
     Active Substance: ATEZOLIZUMAB
     Indication: Small cell lung cancer extensive stage
     Dates: start: 20210630
  45. NETUPITANT [Concomitant]
     Active Substance: NETUPITANT
     Dates: start: 20210630, end: 20210630
  46. NETUPITANT [Concomitant]
     Active Substance: NETUPITANT
     Dates: start: 20210722, end: 20210722
  47. LIPEGFILGRASTIM [Concomitant]
     Active Substance: LIPEGFILGRASTIM
     Dates: start: 20210814, end: 20210814
  48. METFORMIN [Concomitant]
     Active Substance: METFORMIN HYDROCHLORIDE
     Dates: start: 20210712

REACTIONS (23)
  - Diarrhoea [Recovered/Resolved]
  - Blood bilirubin increased [Recovered/Resolved]
  - Haemoptysis [Recovered/Resolved]
  - Hypomagnesaemia [Recovered/Resolved]
  - Weight decreased [Recovered/Resolved]
  - Decreased appetite [Not Recovered/Not Resolved]
  - Nasal congestion [Recovered/Resolved]
  - C-reactive protein increased [Recovered/Resolved]
  - Nausea [Recovered/Resolved]
  - Chest pain [Recovered/Resolved]
  - Anaemia [Not Recovered/Not Resolved]
  - Hypokalaemia [Recovered/Resolved]
  - Asthenia [Recovered/Resolved]
  - Oedema peripheral [Recovered/Resolved]
  - Epistaxis [Recovered/Resolved]
  - Neutrophil count decreased [Recovered/Resolved]
  - Abdominal pain [Recovered/Resolved]
  - Productive cough [Recovered/Resolved]
  - Haematuria [Recovered/Resolved]
  - Aspartate aminotransferase increased [Recovered/Resolved]
  - Stasis dermatitis [Recovered/Resolved]
  - Blood alkaline phosphatase increased [Recovered/Resolved]
  - Thrombocytopenia [Recovered/Resolved]

NARRATIVE: CASE EVENT DATE: 20210701
